FAERS Safety Report 7289432-4 (Version None)
Quarter: 2011Q1

REPORT INFORMATION
  Report Type: 
  Country: None (occurrence: None)
  Receive Date: 20110211
  Receipt Date: 20110201
  Transmission Date: 20110831
  Serious: Yes (Hospitalization)
  Sender: FDA-Public Use
  Company Number: US-BAYER-2011-011056

PATIENT
  Age: 55 Year
  Sex: Female

DRUGS (1)
  1. AVELOX [Suspect]
     Indication: SINUSITIS
     Dosage: 400 MG, ONCE
     Route: 048
     Dates: start: 20110131, end: 20110131

REACTIONS (4)
  - RASH [None]
  - CHEST PAIN [None]
  - DYSPNOEA [None]
  - MYALGIA [None]
